FAERS Safety Report 11317333 (Version 7)
Quarter: 2016Q1

REPORT INFORMATION
  Report Type: Report from Study
  Country: GB (occurrence: GB)
  Receive Date: 20150728
  Receipt Date: 20160208
  Transmission Date: 20160525
  Serious: Yes (Death, Life-Threatening, Hospitalization, Other)
  Sender: FDA-Public Use
  Company Number: PHFR2015GB001716

PATIENT
  Age: 89 Year
  Sex: Male
  Weight: 68.2 kg

DRUGS (26)
  1. ASPIRIN. [Concomitant]
     Active Substance: ASPIRIN
     Indication: ACUTE MYOCARDIAL INFARCTION
     Dosage: 300 MG, ONCE/SINGLE (STAT)
     Route: 048
     Dates: start: 20150216, end: 20150216
  2. LUCENTIS [Suspect]
     Active Substance: RANIBIZUMAB
     Dosage: 0.5 MG/0.05 ML
     Route: 065
     Dates: start: 20131123
  3. RAMIPRIL. [Suspect]
     Active Substance: RAMIPRIL
     Indication: CARDIAC FAILURE CONGESTIVE
     Dosage: 1.25 MG, QD
     Route: 048
     Dates: start: 20130619, end: 20150316
  4. BISOPROLOL [Concomitant]
     Active Substance: BISOPROLOL
     Dosage: 1.25 MG, QD
     Route: 048
     Dates: start: 20150315, end: 20150316
  5. LUCENTIS [Suspect]
     Active Substance: RANIBIZUMAB
     Indication: NEOVASCULAR AGE-RELATED MACULAR DEGENERATION
     Dosage: 0.5 MG/0.05 ML
     Route: 065
     Dates: start: 20120509
  6. BUMETANIDE. [Concomitant]
     Active Substance: BUMETANIDE
     Indication: CARDIAC FAILURE CONGESTIVE
     Dosage: 1 MG, QD
     Route: 048
     Dates: start: 20130614, end: 20150312
  7. ASPIRIN. [Concomitant]
     Active Substance: ASPIRIN
     Indication: CARDIOVASCULAR EVENT PROPHYLAXIS
     Dosage: 300 MG, QD (STAT)
     Route: 048
     Dates: start: 20150312, end: 20150312
  8. ASPIRIN. [Concomitant]
     Active Substance: ASPIRIN
     Dosage: 75 MG, QD
     Route: 048
     Dates: start: 20150326
  9. PREDNISOLONE. [Concomitant]
     Active Substance: PREDNISOLONE
     Dosage: 30 MG, ONCE/SINGLE (STAT)
     Route: 048
     Dates: start: 20150729, end: 20150729
  10. BISOPROLOL [Concomitant]
     Active Substance: BISOPROLOL
     Dosage: 5 MG, QD
     Route: 048
     Dates: start: 20150318
  11. LUCENTIS [Suspect]
     Active Substance: RANIBIZUMAB
     Dosage: 0.5 MG/0.05 ML
     Route: 065
     Dates: start: 20141229, end: 20141229
  12. RAMIPRIL. [Suspect]
     Active Substance: RAMIPRIL
     Indication: HYPONATRAEMIA
     Dosage: 2.5 MG, QD
     Route: 048
     Dates: start: 20150316, end: 20150612
  13. PREDNISOLONE. [Concomitant]
     Active Substance: PREDNISOLONE
     Indication: PNEUMONIA
     Dosage: 3 MG, QD
     Route: 048
     Dates: start: 20130605
  14. LUCENTIS [Suspect]
     Active Substance: RANIBIZUMAB
     Dosage: 0.5 MG/0.05 ML
     Route: 065
     Dates: start: 20141029
  15. LUCENTIS [Suspect]
     Active Substance: RANIBIZUMAB
     Dosage: 0.5 MG/0.05 ML
     Route: 065
     Dates: start: 20150216, end: 20150216
  16. LUCENTIS [Suspect]
     Active Substance: RANIBIZUMAB
     Dosage: 0.5 MG/0.05 ML
     Route: 031
     Dates: start: 20150702, end: 20150702
  17. SPIRONOLACTONE. [Suspect]
     Active Substance: SPIRONOLACTONE
     Indication: HYPONATRAEMIA
     Dosage: 12.5 MG, QD
     Route: 048
     Dates: start: 20150316, end: 20150612
  18. FUROSEMIDE. [Suspect]
     Active Substance: FUROSEMIDE
     Indication: HYPONATRAEMIA
     Dosage: 40 MG, QD
     Route: 042
     Dates: start: 20150312, end: 20150316
  19. ASPIRIN. [Concomitant]
     Active Substance: ASPIRIN
     Dosage: 300 MG, ONCE/SINGLE (STAT)
     Route: 048
     Dates: start: 20150729, end: 20150729
  20. BISOPROLOL [Concomitant]
     Active Substance: BISOPROLOL
     Dosage: 2.5 MG, QD
     Route: 048
     Dates: start: 20150317, end: 20150317
  21. SPIRONOLACTONE. [Suspect]
     Active Substance: SPIRONOLACTONE
     Indication: LEFT VENTRICULAR DYSFUNCTION
     Dosage: 25 MG, QD
     Route: 048
     Dates: start: 20150618, end: 20150715
  22. FUROSEMIDE. [Suspect]
     Active Substance: FUROSEMIDE
     Dosage: 40 MG, QD
     Route: 048
     Dates: start: 20150316, end: 20150612
  23. BISOPROLOL [Concomitant]
     Active Substance: BISOPROLOL
     Indication: CARDIAC FAILURE CONGESTIVE
     Dosage: 1.25 MG, QD
     Route: 048
     Dates: start: 20150217, end: 20150312
  24. BISOPROLOL [Concomitant]
     Active Substance: BISOPROLOL
     Dosage: 2.5 MG, QD
     Route: 048
     Dates: start: 20150312, end: 20150312
  25. OMEPRAZOLE. [Suspect]
     Active Substance: OMEPRAZOLE
     Indication: HYPONATRAEMIA
     Dosage: UNK
     Route: 048
     Dates: start: 201504
  26. OMEPRAZOLE. [Suspect]
     Active Substance: OMEPRAZOLE
     Dosage: 40 MG, BID
     Route: 048
     Dates: end: 20150625

REACTIONS (20)
  - Myocardial infarction [Fatal]
  - Left ventricular dysfunction [Not Recovered/Not Resolved]
  - Hypotension [Not Recovered/Not Resolved]
  - Ventricular tachycardia [Recovered/Resolved]
  - Cardiac failure [Not Recovered/Not Resolved]
  - Staphylococcal bacteraemia [Recovered/Resolved]
  - Dyspnoea [Recovering/Resolving]
  - Circulatory collapse [Recovered/Resolved]
  - Hyponatraemia [Not Recovered/Not Resolved]
  - Acute myocardial infarction [Recovered/Resolved with Sequelae]
  - Orthostatic hypotension [Recovered/Resolved]
  - Orthostatic hypotension [Not Recovered/Not Resolved]
  - Dizziness [Not Recovered/Not Resolved]
  - Cough [Recovered/Resolved]
  - Concomitant disease progression [Not Recovered/Not Resolved]
  - Angina pectoris [Recovered/Resolved]
  - Chronic obstructive pulmonary disease [Recovered/Resolved]
  - Pneumonia [Recovered/Resolved]
  - Cardiac arrest [Recovered/Resolved]
  - Myalgia [Recovered/Resolved]

NARRATIVE: CASE EVENT DATE: 20150216
